FAERS Safety Report 14127809 (Version 1)
Quarter: 2017Q4

REPORT INFORMATION
  Report Type: Spontaneous
  Country: US (occurrence: US)
  Receive Date: 20171026
  Receipt Date: 20171026
  Transmission Date: 20180321
  Serious: No
  Sender: FDA-Public Use
  Company Number: US-PFIZER INC-2017458620

PATIENT
  Age: 66 Year
  Sex: Female
  Weight: 86.18 kg

DRUGS (7)
  1. ROBITUSSIN COUGH AND COLD CF MAX [Suspect]
     Active Substance: DEXTROMETHORPHAN HYDROBROMIDE\GUAIFENESIN\PHENYLEPHRINE HYDROCHLORIDE
     Indication: COUGH
     Dosage: 20ML BY MOUTH ONCE
     Route: 048
     Dates: start: 20171010, end: 20171010
  2. ROBITUSSIN COUGH AND COLD CF MAX [Suspect]
     Active Substance: DEXTROMETHORPHAN HYDROBROMIDE\GUAIFENESIN\PHENYLEPHRINE HYDROCHLORIDE
     Indication: RESPIRATORY TRACT CONGESTION
  3. BENZONATATE. [Suspect]
     Active Substance: BENZONATATE
     Indication: COUGH
     Dosage: 200MG TAKE 1 CAPSULE BY MOUTH 3 TIMES DAILY AS NEEDED
     Route: 048
  4. GUAIATUSSIN AC [Suspect]
     Active Substance: CODEINE PHOSPHATE\GUAIFENESIN
     Indication: COUGH
     Dosage: 5MLS BY MOUTH 3 TIMES DAILY AS NEEDED
     Route: 048
  5. ROBITUSSIN COUGH AND COLD CF MAX [Suspect]
     Active Substance: DEXTROMETHORPHAN HYDROBROMIDE\GUAIFENESIN\PHENYLEPHRINE HYDROCHLORIDE
     Indication: NASOPHARYNGITIS
  6. ROBITUSSIN COUGH AND COLD CF MAX [Suspect]
     Active Substance: DEXTROMETHORPHAN HYDROBROMIDE\GUAIFENESIN\PHENYLEPHRINE HYDROCHLORIDE
     Indication: OROPHARYNGEAL PAIN
  7. ROBITUSSIN COUGH AND COLD CF MAX [Suspect]
     Active Substance: DEXTROMETHORPHAN HYDROBROMIDE\GUAIFENESIN\PHENYLEPHRINE HYDROCHLORIDE
     Indication: NASAL CONGESTION

REACTIONS (1)
  - Drug ineffective [Unknown]

NARRATIVE: CASE EVENT DATE: 20171010
